FAERS Safety Report 16911713 (Version 1)
Quarter: 2019Q4

REPORT INFORMATION
  Report Type: Report from Study
  Country: None (occurrence: US)
  Receive Date: 20191014
  Receipt Date: 20191014
  Transmission Date: 20200122
  Serious: Yes (Other)
  Sender: FDA-Public Use
  Company Number: US-ABBVIE-19K-163-2956831-00

PATIENT
  Sex: Female

DRUGS (1)
  1. LUPRON DEPOT [Suspect]
     Active Substance: LEUPROLIDE ACETATE
     Indication: UTERINE LEIOMYOMA
     Route: 050
     Dates: start: 2003

REACTIONS (8)
  - Abdominal pain [Not Recovered/Not Resolved]
  - Poisoning [Unknown]
  - Headache [Unknown]
  - Blindness [Not Recovered/Not Resolved]
  - Cellulitis [Not Recovered/Not Resolved]
  - Cataract [Unknown]
  - Neuropathy peripheral [Not Recovered/Not Resolved]
  - Hair disorder [Not Recovered/Not Resolved]
